FAERS Safety Report 20438491 (Version 3)
Quarter: 2022Q3

REPORT INFORMATION
  Report Type: Report from Study
  Country: AE (occurrence: AE)
  Receive Date: 20220207
  Receipt Date: 20220916
  Transmission Date: 20221027
  Serious: Yes (Death, Hospitalization)
  Sender: FDA-Public Use
  Company Number: AE-NOVARTISPH-NVSC2022AE025607

PATIENT
  Sex: Female

DRUGS (1)
  1. MAYZENT [Suspect]
     Active Substance: SIPONIMOD
     Indication: Multiple sclerosis
     Dosage: 2 MG, QD
     Route: 048
     Dates: start: 20210512

REACTIONS (8)
  - General physical health deterioration [Fatal]
  - Hallucination [Recovered/Resolved]
  - Ulcer [Recovered/Resolved]
  - Inflammation [Recovered/Resolved]
  - Renal impairment [Recovered/Resolved]
  - Urinary tract inflammation [Recovered/Resolved]
  - Decreased immune responsiveness [Unknown]
  - Urinary tract infection bacterial [Unknown]

NARRATIVE: CASE EVENT DATE: 20211231
